FAERS Safety Report 14345014 (Version 1)
Quarter: 2018Q1

REPORT INFORMATION
  Report Type: Spontaneous
  Country: US (occurrence: US)
  Receive Date: 20180103
  Receipt Date: 20180103
  Transmission Date: 20180509
  Serious: No
  Sender: FDA-Public Use
  Company Number: US-ASTRAZENECA-2018SE00390

PATIENT
  Age: 34 Year
  Sex: Female

DRUGS (2)
  1. PREDNISONE. [Concomitant]
     Active Substance: PREDNISONE
  2. TUDORZA PRESSAIR [Suspect]
     Active Substance: ACLIDINIUM BROMIDE
     Indication: SARCOIDOSIS
     Dosage: 400 MCG UNKNOWN
     Route: 055

REACTIONS (4)
  - Pulse abnormal [Unknown]
  - Off label use [Unknown]
  - Obesity [Unknown]
  - Product use in unapproved indication [Unknown]
